FAERS Safety Report 10590818 (Version 2)
Quarter: 2014Q4

REPORT INFORMATION
  Report Type: Spontaneous
  Country: JP (occurrence: JP)
  Receive Date: 20141118
  Receipt Date: 20141120
  Transmission Date: 20150529
  Serious: Yes (Life-Threatening, Hospitalization, Disabling, Other)
  Sender: FDA-Public Use
  Company Number: JP-GLAXOSMITHKLINE-JP2014JPN021432

PATIENT
  Age: 82 Year
  Sex: Male

DRUGS (7)
  1. NEUQUINON [Concomitant]
     Active Substance: UBIDECARENONE
     Dosage: 10 MG, BID
  2. ACINON [Concomitant]
     Active Substance: NIZATIDINE
     Dosage: 150 MG, QD
  3. URSO [Concomitant]
     Active Substance: URSODIOL
     Dosage: 100 MG, BID
  4. EDIROL [Concomitant]
     Active Substance: ELDECALCITOL
     Dosage: 1 DF, QD
  5. TRADITIONAL CHINESE MEDICINE [Concomitant]
     Active Substance: HERBALS
     Dosage: 2.5 G, BID
  6. VALTREX [Suspect]
     Active Substance: VALACYCLOVIR HYDROCHLORIDE
     Indication: HERPES ZOSTER
     Dosage: 1000 MG, QD
     Route: 048
     Dates: start: 20141014, end: 20141015
  7. TRADITIONAL CHINESE MEDICINE [Concomitant]
     Active Substance: HERBALS
     Dosage: 2.5 G, BID

REACTIONS (3)
  - Altered state of consciousness [Recovered/Resolved]
  - Delirium [Unknown]
  - Loss of consciousness [Recovered/Resolved]

NARRATIVE: CASE EVENT DATE: 20141014
